FAERS Safety Report 5954238-2 (Version None)
Quarter: 2008Q4

REPORT INFORMATION
  Report Type: 
  Country: None (occurrence: None)
  Receive Date: 20081117
  Receipt Date: 20081106
  Transmission Date: 20090506
  Serious: Yes (Other)
  Sender: FDA-Public Use
  Company Number: US-JNJFOC-20080802097

PATIENT
  Sex: Male

DRUGS (4)
  1. REMICADE [Suspect]
     Indication: CROHN'S DISEASE
     Dosage: ON INFIXIMAB FOR 4-5 YEARS
     Route: 042
  2. SINGULAIR [Concomitant]
  3. CALTRATE D [Concomitant]
  4. M.V.I. [Concomitant]

REACTIONS (1)
  - LATENT TUBERCULOSIS [None]
